FAERS Safety Report 6005619-2 (Version None)
Quarter: 2008Q4

REPORT INFORMATION
  Report Type: 
  Country: None (occurrence: None)
  Receive Date: 20081216
  Receipt Date: 20081216
  Transmission Date: 20090506
  Serious: Yes (Disabling)
  Sender: FDA-Public Use
  Company Number: None

PATIENT
  Age: 63 Year
  Sex: Male
  Weight: 81.6475 kg

DRUGS (1)
  1. LEVAQUIN [Suspect]
     Indication: PROSTATITIS
     Dosage: 750MG ONE DAILY PO MULTIPLE ONE MONTH DOSES
     Route: 048

REACTIONS (2)
  - BURSITIS INFECTIVE STAPHYLOCOCCAL [None]
  - TENDONITIS [None]
